FAERS Safety Report 9744873 (Version 2)
Quarter: 2014Q1

REPORT INFORMATION
  Report Type: Spontaneous
  Country: GB (occurrence: GB)
  Receive Date: 20131211
  Receipt Date: 20140109
  Transmission Date: 20141002
  Serious: Yes (Other)
  Sender: FDA-Public Use
  Company Number: GB-BEH-2013039343

PATIENT
  Age: 17 Year
  Sex: Female

DRUGS (1)
  1. PRIVIGEN [Suspect]
     Indication: MYASTHENIA GRAVIS

REACTIONS (2)
  - Wheezing [Unknown]
  - Wheezing [Recovered/Resolved]
